FAERS Safety Report 19189866 (Version 2)
Quarter: 2021Q2

REPORT INFORMATION
  Report Type: Spontaneous
  Country: BE (occurrence: BE)
  Receive Date: 20210428
  Receipt Date: 20210512
  Transmission Date: 20210717
  Serious: Yes (Other)
  Sender: FDA-Public Use
  Company Number: BE-TEVA-2020-BE-1817422

PATIENT
  Age: 29 Year
  Sex: Female

DRUGS (2)
  1. TRISENOX [Suspect]
     Active Substance: ARSENIC TRIOXIDE
     Dosage: DAY 2, 4 CYCLES OF CONSOLIDATION TREATMENT
     Route: 065
  2. ATRA [Suspect]
     Active Substance: TRETINOIN
     Dosage: DAY 1
     Route: 065

REACTIONS (8)
  - Diplopia [Recovered/Resolved]
  - Electrocardiogram T wave inversion [Recovered/Resolved]
  - Hypokalaemia [Recovered/Resolved]
  - Diarrhoea [Recovered/Resolved]
  - Hypomagnesaemia [Recovered/Resolved]
  - VIth nerve paralysis [Recovered/Resolved]
  - Intracranial pressure increased [Unknown]
  - Nausea [Recovered/Resolved]
